FAERS Safety Report 6765005-4 (Version None)
Quarter: 2010Q2

REPORT INFORMATION
  Report Type: 
  Country: None (occurrence: None)
  Receive Date: 20100609
  Receipt Date: 20100510
  Transmission Date: 20101027
  Serious: No
  Sender: FDA-Public Use
  Company Number: 2010011188

PATIENT
  Age: 7 Year
  Sex: Female
  Weight: 19.0511 kg

DRUGS (1)
  1. CHILDREN'S ZYRTEC ALLERGY [Suspect]
     Indication: SEASONAL ALLERGY
     Dosage: 1 TEASPOONFUL ONCE ORAL
     Route: 048
     Dates: start: 20100401, end: 20100401

REACTIONS (2)
  - PRODUCT QUALITY ISSUE [None]
  - VOMITING [None]
